FAERS Safety Report 15376575 (Version 1)
Quarter: 2018Q3

REPORT INFORMATION
  Report Type: Spontaneous
  Country: FR (occurrence: FR)
  Receive Date: 20180912
  Receipt Date: 20180912
  Transmission Date: 20181010
  Serious: Yes (Other)
  Sender: FDA-Public Use
  Company Number: FR-VERTEX PHARMACEUTICALS-2018-006430

PATIENT
  Sex: Male

DRUGS (1)
  1. ORKAMBI [Suspect]
     Active Substance: IVACAFTOR\LUMACAFTOR
     Indication: CYSTIC FIBROSIS
     Dosage: 1 DOSAGE FORM, QD
     Route: 048
     Dates: start: 2016, end: 2016

REACTIONS (3)
  - Choking [Unknown]
  - Blood pressure increased [Unknown]
  - Underdose [Unknown]

NARRATIVE: CASE EVENT DATE: 2016
